FAERS Safety Report 13964188 (Version 4)
Quarter: 2018Q1

REPORT INFORMATION
  Report Type: Report from Study
  Country: None (occurrence: US)
  Receive Date: 20170913
  Receipt Date: 20180226
  Transmission Date: 20180508
  Serious: Yes (Hospitalization, Other)
  Sender: FDA-Public Use
  Company Number: US-ABBVIE-17K-163-2095208-00

PATIENT
  Age: 64 Year
  Sex: Male
  Weight: 89.89 kg

DRUGS (4)
  1. PLAVIX [Suspect]
     Active Substance: CLOPIDOGREL BISULFATE
     Indication: MYOCARDIAL INFARCTION
  2. HUMIRA [Suspect]
     Active Substance: ADALIMUMAB
     Indication: ANKYLOSING SPONDYLITIS
     Route: 058
     Dates: start: 201705
  3. HUMIRA [Suspect]
     Active Substance: ADALIMUMAB
     Indication: CROHN^S DISEASE
     Route: 058
     Dates: end: 201704
  4. PLAVIX [Suspect]
     Active Substance: CLOPIDOGREL BISULFATE
     Indication: CORONARY ARTERY OCCLUSION
     Route: 065
     Dates: start: 2017

REACTIONS (16)
  - Nerve root compression [Unknown]
  - Cyst [Not Recovered/Not Resolved]
  - Myocardial infarction [Recovered/Resolved]
  - Procedural pain [Not Recovered/Not Resolved]
  - Feeling cold [Recovered/Resolved]
  - Gastrointestinal sounds abnormal [Unknown]
  - Injection site rash [Unknown]
  - Coronary artery occlusion [Recovered/Resolved]
  - Nasopharyngitis [Recovering/Resolving]
  - Neuralgia [Unknown]
  - Abdominal discomfort [Unknown]
  - Skin papilloma [Recovered/Resolved]
  - Injection site pruritus [Unknown]
  - Adverse drug reaction [Unknown]
  - Hypersensitivity [Unknown]
  - Pain [Not Recovered/Not Resolved]

NARRATIVE: CASE EVENT DATE: 2017
